FAERS Safety Report 9649241 (Version 2)
Quarter: 2013Q4

REPORT INFORMATION
  Report Type: Spontaneous
  Country: US (occurrence: US)
  Receive Date: 20131028
  Receipt Date: 20131114
  Transmission Date: 20140711
  Serious: Yes (Other)
  Sender: FDA-Public Use
  Company Number: US-GLAXOSMITHKLINE-A1044415A

PATIENT
  Age: 67 Year
  Sex: Female
  Weight: 72.7 kg

DRUGS (18)
  1. ADVAIR [Suspect]
     Indication: ASTHMA
     Dosage: 1PUFF PER DAY
     Route: 055
  2. VENTOLIN HFA [Suspect]
     Indication: PRODUCT USED FOR UNKNOWN INDICATION
     Route: 065
  3. CRESTOR [Concomitant]
  4. POTASSIUM CL [Concomitant]
  5. IRBESARTAN [Concomitant]
  6. LORAZEPAM [Concomitant]
  7. DILTIAZEM ER [Concomitant]
  8. LANTUS [Concomitant]
  9. ISOSORBIDE MONONITRATE [Concomitant]
  10. TRAMADOL [Concomitant]
  11. HUMALOG [Concomitant]
  12. FLUTICASONE [Concomitant]
  13. ROBAXIN [Concomitant]
  14. FLEXERIL [Concomitant]
  15. ANTI-INFLAMMATORY [Concomitant]
  16. TYLENOL [Concomitant]
  17. MULTIVITAMIN [Concomitant]
  18. NEBULIZER [Concomitant]

REACTIONS (12)
  - Candida infection [Recovered/Resolved]
  - Tachycardia [Recovered/Resolved]
  - Heart rate irregular [Recovered/Resolved]
  - Drug administration error [Unknown]
  - Dyspnoea [Recovered/Resolved]
  - Asthenia [Unknown]
  - Fatigue [Unknown]
  - Activities of daily living impaired [Unknown]
  - Lung disorder [Recovered/Resolved]
  - Asthma [Recovered/Resolved]
  - Nasal congestion [Not Recovered/Not Resolved]
  - Hypersensitivity [Recovered/Resolved]
